FAERS Safety Report 8060562-2 (Version None)
Quarter: 2012Q1

REPORT INFORMATION
  Report Type: 
  Country: None (occurrence: None)
  Receive Date: 20120120
  Receipt Date: 20120112
  Transmission Date: 20120608
  Serious: Yes (Other)
  Sender: FDA-Public Use
  Company Number: CHPA2012US001271

PATIENT
  Sex: Female

DRUGS (1)
  1. EXCEDRIN EXTRA STRENGTH TABLETS [Suspect]
     Indication: HEADACHE
     Dosage: 2-6 DF, QD, PRN
     Route: 048
     Dates: start: 19860101

REACTIONS (5)
  - UPPER LIMB FRACTURE [None]
  - ABDOMINAL PAIN UPPER [None]
  - SYNCOPE [None]
  - DIZZINESS [None]
  - LIGAMENT SPRAIN [None]
